FAERS Safety Report 6956051-6 (Version None)
Quarter: 2010Q3

REPORT INFORMATION
  Report Type: 
  Country: None (occurrence: None)
  Receive Date: 20100830
  Receipt Date: 20100820
  Transmission Date: 20110219
  Serious: Yes (Other)
  Sender: FDA-Public Use
  Company Number: GXKR2010PT09366

PATIENT
  Age: 41 Year
  Sex: Male

DRUGS (3)
  1. AZITHROMYCIN (NGX) [Suspect]
     Indication: PNEUMONIA
     Dosage: 500 MG, ONCE/SINGLE
     Route: 042
  2. CO-TRIMOXAZOLE (NGX) [Interacting]
     Indication: PNEUMONIA
     Route: 065
  3. CEFOTAXIME SODIUM [Concomitant]
     Indication: INTERSTITIAL LUNG DISEASE

REACTIONS (5)
  - APPARENT DEATH [None]
  - BRADYCARDIA [None]
  - DIZZINESS [None]
  - ELECTROCARDIOGRAM QT PROLONGED [None]
  - HYPERHIDROSIS [None]
